FAERS Safety Report 22165625 (Version 1)
Quarter: 2023Q2

REPORT INFORMATION
  Report Type: Report from Study
  Country: ZA (occurrence: ZA)
  Receive Date: 20230403
  Receipt Date: 20230403
  Transmission Date: 20230721
  Serious: Yes (Hospitalization, Other)
  Sender: FDA-Public Use
  Company Number: ZA-TEVA-2022-ZA-2051467

PATIENT
  Age: 33 Year
  Sex: Female

DRUGS (8)
  1. COPAXONE [Suspect]
     Active Substance: GLATIRAMER ACETATE
     Indication: Multiple sclerosis
     Dosage: 20 MILLIGRAM/MILLILITERS DAILY; ONE SYRINGE
     Route: 058
     Dates: start: 20200814, end: 20220612
  2. COPAXONE [Suspect]
     Active Substance: GLATIRAMER ACETATE
     Dosage: 20 MILLIGRAM/MILLILITERS DAILY;
     Route: 065
     Dates: start: 202209
  3. SERDEP [Concomitant]
     Indication: Depression
     Dosage: 200 MILLIGRAM DAILY;
     Route: 065
     Dates: start: 2021
  4. SERDEP [Concomitant]
     Indication: Obsessive-compulsive disorder
  5. RITALIN [Concomitant]
     Active Substance: METHYLPHENIDATE HYDROCHLORIDE
     Indication: Product used for unknown indication
     Route: 065
  6. TRISEQUENCE [Concomitant]
     Indication: Product used for unknown indication
     Route: 065
  7. ZOLPIDEM TARTRATE [Concomitant]
     Active Substance: ZOLPIDEM TARTRATE
     Indication: Insomnia
     Dosage: 5 MILLIGRAM DAILY; 5/10 MG?YEARS AGO
     Route: 048
  8. ECOTRIN [Concomitant]
     Active Substance: ASPIRIN
     Indication: Thrombosis prophylaxis
     Dosage: 66 MILLIGRAM DAILY; AT 6 WEEKS
     Route: 048
     Dates: start: 20230131

REACTIONS (3)
  - Caesarean section [Unknown]
  - Live birth [Unknown]
  - Maternal exposure during pregnancy [Unknown]

NARRATIVE: CASE EVENT DATE: 20220501
